FAERS Safety Report 8122138-8 (Version None)
Quarter: 2012Q1

REPORT INFORMATION
  Report Type: 
  Country: None (occurrence: None)
  Receive Date: 20120208
  Receipt Date: 20120201
  Transmission Date: 20120608
  Serious: Yes (Other)
  Sender: FDA-Public Use
  Company Number: US-BAYER-2011-047520

PATIENT
  Age: 20 Year
  Sex: Female
  Weight: 113.38 kg

DRUGS (6)
  1. DROSPIRENONE AND ETHINYL ESTRADIOL [Suspect]
     Indication: PREMENSTRUAL SYNDROME
     Dosage: UNK
     Route: 048
     Dates: start: 20040101, end: 20110101
  2. LAMICTAL [Concomitant]
  3. YASMIN [Suspect]
     Indication: PREMENSTRUAL SYNDROME
     Dosage: UNK
     Route: 048
     Dates: start: 20040101, end: 20110101
  4. ALBUTEROL [Concomitant]
  5. NSAID'S [Concomitant]
  6. ANTIBIOTICS [Concomitant]

REACTIONS (8)
  - ABDOMINAL PAIN UPPER [None]
  - CHOLELITHIASIS [None]
  - ANXIETY [None]
  - CHOLECYSTITIS ACUTE [None]
  - FEAR [None]
  - PSYCHOLOGICAL TRAUMA [None]
  - ANHEDONIA [None]
  - EMOTIONAL DISTRESS [None]
